FAERS Safety Report 5047419-6 (Version None)
Quarter: 2006Q3

REPORT INFORMATION
  Report Type: 
  Country: None (occurrence: None)
  Receive Date: 20060711
  Receipt Date: 20060629
  Transmission Date: 20061208
  Serious: Yes (Other)
  Sender: FDA-Public Use
  Company Number: PHNU2006DE02415

PATIENT
  Age: 45 Year
  Sex: Male

DRUGS (1)
  1. CO-DIOVAN FORTE [Suspect]
     Dosage: UNK, UNK
     Dates: start: 20040101, end: 20060101

REACTIONS (3)
  - LUNG INFILTRATION [None]
  - PLEURISY [None]
  - PNEUMONITIS [None]
